FAERS Safety Report 20204844 (Version 1)
Quarter: 2021Q4

REPORT INFORMATION
  Report Type: Spontaneous
  Country: IT (occurrence: IT)
  Receive Date: 20211220
  Receipt Date: 20211220
  Transmission Date: 20220303
  Serious: Yes (Other)
  Sender: FDA-Public Use
  Company Number: IT-MINISAL02-818608

PATIENT
  Age: 42 Year
  Sex: Male

DRUGS (1)
  1. RAMIPRIL [Suspect]
     Active Substance: RAMIPRIL
     Indication: Product used for unknown indication
     Dosage: 1 DOSAGE FORM TOTAL
     Route: 048
     Dates: start: 20211130, end: 20211130

REACTIONS (4)
  - Abdominal pain [Recovering/Resolving]
  - Paraesthesia [Recovering/Resolving]
  - Hypotension [Recovering/Resolving]
  - Syncope [Recovering/Resolving]

NARRATIVE: CASE EVENT DATE: 20211201
